FAERS Safety Report 4383632-9 (Version None)
Quarter: 2004Q2

REPORT INFORMATION
  Report Type: 
  Country: None (occurrence: None)
  Receive Date: 20040623
  Receipt Date: 20040615
  Transmission Date: 20050107
  Serious: Yes (Hospitalization)
  Sender: FDA-Public Use
  Company Number: PHNR2004AU01048

PATIENT
  Age: 70 Year
  Sex: Female
  Weight: 87 kg

DRUGS (5)
  1. LAMISIL [Suspect]
     Dosage: 250 MG, QD
     Route: 048
     Dates: start: 20030224, end: 20030501
  2. PAROXETINE HCL [Concomitant]
  3. AVAPRO [Concomitant]
  4. BETALOC [Concomitant]
  5. ZOCOR [Concomitant]

REACTIONS (8)
  - ANOREXIA [None]
  - BALANCE DISORDER [None]
  - DEAFNESS [None]
  - DIPLOPIA [None]
  - DIZZINESS [None]
  - HYPOAESTHESIA [None]
  - HYPOAESTHESIA ORAL [None]
  - VOMITING [None]
